FAERS Safety Report 6413861 (Version 5)
Quarter: 2013Q4

REPORT INFORMATION
  Report Type: Spontaneous
  Country: US (occurrence: US)
  Receive Date: 20070914
  Receipt Date: 20131028
  Transmission Date: 20140711
  Serious: Yes (Death, Other)
  Sender: FDA-Public Use
  Company Number: US-PURDUE-USA_2007_0028110

PATIENT
  Age: 18 Year
  Sex: Female

DRUGS (2)
  1. OXYCONTIN TABLETS [Suspect]
     Indication: DRUG ABUSE
     Dosage: UNK
     Route: 048
     Dates: start: 2006
  2. ALCOHOL [Suspect]
     Indication: ALCOHOL USE
     Route: 048

REACTIONS (3)
  - Accidental overdose [Fatal]
  - Substance abuse [Unknown]
  - Respiratory arrest [Fatal]
